FAERS Safety Report 6510774-1 (Version None)
Quarter: 2009Q4

REPORT INFORMATION
  Report Type: 
  Country: None (occurrence: None)
  Receive Date: 20091222
  Receipt Date: 20091216
  Transmission Date: 20100525
  Serious: Yes (Hospitalization)
  Sender: FDA-Public Use
  Company Number: FR-PFIZER INC-2009310927

PATIENT
  Age: 62 Year

DRUGS (8)
  1. ALDACTAZINE [Suspect]
     Indication: HYPERTENSION
     Dosage: 1 DF, 1X/DAY
     Route: 048
     Dates: end: 20091111
  2. ATARAX [Suspect]
     Indication: ANXIETY
     Dosage: 1.5 DF, 1X/DAY
     Route: 048
     Dates: end: 20091109
  3. ATHYMIL [Suspect]
     Indication: DEPRESSION
     Dosage: 30 MG, 1X/DAY
     Route: 048
     Dates: end: 20091113
  4. LAMALINE [Suspect]
     Indication: PAIN
     Dosage: 1 DF, 4X/DAY
     Route: 048
     Dates: end: 20091109
  5. HAVLANE [Suspect]
     Indication: INSOMNIA
     Dosage: 1 DF, 1X/DAY
     Route: 048
     Dates: end: 20091109
  6. LEVOTHYROXINE SODIUM [Concomitant]
     Dosage: UNK
  7. PROZAC [Concomitant]
     Dosage: UNK
  8. LEXOMIL [Concomitant]
     Dosage: UNK

REACTIONS (2)
  - MALAISE [None]
  - ORTHOSTATIC HYPOTENSION [None]
